FAERS Safety Report 7916935-9 (Version None)
Quarter: 2011Q4

REPORT INFORMATION
  Report Type: 
  Country: None (occurrence: None)
  Receive Date: 20111114
  Receipt Date: 20111031
  Transmission Date: 20120403
  Serious: Yes (Life-Threatening, Hospitalization, Disabling, Other)
  Sender: FDA-Public Use
  Company Number: 2011AP002534

PATIENT
  Age: 66 Year
  Sex: Male

DRUGS (5)
  1. LEFLUNOMIDE [Suspect]
     Indication: SERONEGATIVE ARTHRITIS
     Route: 048
     Dates: start: 20110427, end: 20110603
  2. ATENOLOL [Concomitant]
  3. AMITRIPTYLINE HCL [Concomitant]
  4. ALLOPURINOL [Concomitant]
  5. PREDNISOLONE [Concomitant]

REACTIONS (11)
  - DELIRIUM [None]
  - HEPATIC FAILURE [None]
  - FINGER AMPUTATION [None]
  - COAGULOPATHY [None]
  - RESPIRATORY FAILURE [None]
  - INFARCTION [None]
  - HEPATIC FUNCTION ABNORMAL [None]
  - ERYTHEMA MULTIFORME [None]
  - VASCULITIC RASH [None]
  - ORAL DISORDER [None]
  - RENAL FAILURE ACUTE [None]
